FAERS Safety Report 9054635 (Version 1)
Quarter: 2013Q1

REPORT INFORMATION
  Report Type: Spontaneous
  Country: US (occurrence: US)
  Receive Date: 20130208
  Receipt Date: 20130208
  Transmission Date: 20140127
  Serious: Yes (Other)
  Sender: FDA-Public Use
  Company Number: US-JNJFOC-20130116871

PATIENT
  Sex: Female
  Weight: 56.7 kg

DRUGS (7)
  1. TOPAMAX [Suspect]
     Indication: PAIN
     Route: 048
  2. TOPAMAX [Suspect]
     Indication: PAIN
     Route: 048
  3. TOPAMAX [Suspect]
     Indication: PAIN
     Route: 048
     Dates: start: 201105
  4. GABAPENTIN [Concomitant]
     Indication: NEUROPATHY PERIPHERAL
     Route: 048
  5. DOXYCYCLINE [Concomitant]
     Indication: DRY EYE
     Route: 065
  6. LISINOPRIL [Concomitant]
     Indication: PRODUCT USED FOR UNKNOWN INDICATION
     Route: 048
  7. SIMVASTATIN [Concomitant]
     Indication: BLOOD CHOLESTEROL
     Route: 048

REACTIONS (6)
  - Fall [Recovered/Resolved]
  - Head injury [Recovered/Resolved]
  - Vision blurred [Not Recovered/Not Resolved]
  - Insomnia [Not Recovered/Not Resolved]
  - Alopecia [Not Recovered/Not Resolved]
  - Treatment noncompliance [Unknown]
